FAERS Safety Report 10204843 (Version 2)
Quarter: 2014Q2

REPORT INFORMATION
  Report Type: Spontaneous
  Country: FR (occurrence: FR)
  Receive Date: 20140529
  Receipt Date: 20140609
  Transmission Date: 20141212
  Serious: Yes (Hospitalization)
  Sender: FDA-Public Use
  Company Number: FR-PFIZER INC-2014144532

PATIENT
  Age: 37 Year
  Sex: Female

DRUGS (5)
  1. XANAX [Suspect]
     Dosage: 2 MG, SINGLE
     Route: 048
     Dates: start: 20140415, end: 20140415
  2. LEXOMIL ROCHE [Suspect]
     Dosage: 180 MG, SINGLE
     Route: 048
     Dates: start: 20140415, end: 20140415
  3. MYOLASTAN [Suspect]
     Dosage: 600 MG, SINGLE
     Route: 048
     Dates: start: 20140415, end: 20140415
  4. IXPRIM [Suspect]
     Dosage: PARACETAMOL 650 MG/ TRAMADOL HYDROCHLORIDE 75 MG, SINGLE
     Route: 048
     Dates: start: 20140415, end: 20140415
  5. SEROPLEX [Suspect]
     Dosage: 20 MG, SINGLE
     Route: 048
     Dates: start: 20140415, end: 20140415

REACTIONS (4)
  - Somnolence [Recovered/Resolved]
  - Mydriasis [Recovered/Resolved]
  - Serotonin syndrome [Unknown]
  - Suicide attempt [Unknown]
